FAERS Safety Report 12342423 (Version 1)
Quarter: 2016Q2

REPORT INFORMATION
  Report Type: Spontaneous
  Country: US (occurrence: US)
  Receive Date: 20160506
  Receipt Date: 20160506
  Transmission Date: 20160815
  Serious: Yes (Hospitalization)
  Sender: FDA-Public Use
  Company Number: US-PFIZER INC-2016244876

PATIENT
  Age: 55 Year
  Sex: Female

DRUGS (12)
  1. FISH OIL [Concomitant]
     Active Substance: FISH OIL
     Dosage: UNK
  2. IRON [Concomitant]
     Active Substance: IRON
     Dosage: UNK
  3. PRILOSEC [Concomitant]
     Active Substance: OMEPRAZOLE MAGNESIUM
     Dosage: UNK
  4. SOY [Concomitant]
     Active Substance: SOY EXTRACT
     Dosage: UNK
  5. PREMARIN [Suspect]
     Active Substance: ESTROGENS, CONJUGATED
     Dosage: UNK, 2X/DAY
     Route: 067
     Dates: start: 201602
  6. CALCIUM 600 + D [Concomitant]
     Active Substance: CALCIUM\VITAMIN D
     Dosage: UNK
  7. CLARITIN [Concomitant]
     Active Substance: LORATADINE
     Dosage: UNK
  8. VITAMIN D [Concomitant]
     Active Substance: CHOLECALCIFEROL
     Dosage: UNK
  9. VITAMIN C [Concomitant]
     Active Substance: ASCORBIC ACID
     Dosage: UNK
  10. GLICLAZIDE [Concomitant]
     Active Substance: GLICLAZIDE
  11. VESICARE [Suspect]
     Active Substance: SOLIFENACIN SUCCINATE
     Indication: INCONTINENCE
     Dosage: 5 MG, 1X/DAY
     Dates: start: 201602
  12. FLUTICASONE [Concomitant]
     Active Substance: FLUTICASONE\FLUTICASONE PROPIONATE
     Dosage: UNK

REACTIONS (11)
  - Stress [Unknown]
  - Feeling abnormal [Unknown]
  - Anxiety [Unknown]
  - Influenza [Unknown]
  - Decreased appetite [Unknown]
  - Vision blurred [Unknown]
  - Lacrimation decreased [Unknown]
  - Thinking abnormal [Unknown]
  - Tenderness [Unknown]
  - Dizziness [Unknown]
  - Discomfort [Unknown]
